FAERS Safety Report 15057537 (Version 1)
Quarter: 2018Q2

REPORT INFORMATION
  Report Type: Spontaneous
  Country: IN (occurrence: IN)
  Receive Date: 20180625
  Receipt Date: 20180625
  Transmission Date: 20180711
  Serious: Yes (Hospitalization, Other)
  Sender: FDA-Public Use
  Company Number: IN-ACCORD-068542

PATIENT
  Age: 65 Year
  Sex: Female
  Weight: 64 kg

DRUGS (6)
  1. ACECLOFENAC [Suspect]
     Active Substance: ACECLOFENAC
     Indication: ARTHRALGIA
     Dosage: 2-3 TIMES
  2. ERGOCALCIFEROL. [Concomitant]
     Active Substance: ERGOCALCIFEROL
     Indication: RHEUMATOID ARTHRITIS
  3. METHOTREXATE. [Suspect]
     Active Substance: METHOTREXATE
     Indication: RHEUMATOID ARTHRITIS
     Route: 048
  4. HYDROXYCHLOROQUINE [Concomitant]
     Active Substance: HYDROXYCHLOROQUINE
     Indication: RHEUMATOID ARTHRITIS
  5. CALCIUM CARBONATE/CALCIUM LACTOGLUCONATE [Concomitant]
     Indication: RHEUMATOID ARTHRITIS
  6. FOLIC ACID. [Concomitant]
     Active Substance: FOLIC ACID
     Indication: RHEUMATOID ARTHRITIS

REACTIONS (5)
  - Bone marrow failure [Recovering/Resolving]
  - Acute kidney injury [Recovering/Resolving]
  - Hepatic steatosis [Recovering/Resolving]
  - Conjunctival haemorrhage [Recovering/Resolving]
  - Mouth ulceration [Unknown]
